FAERS Safety Report 4548441-6 (Version None)
Quarter: 2004Q4

REPORT INFORMATION
  Report Type: 
  Country: None (occurrence: None)
  Receive Date: 20041227
  Receipt Date: 20041019
  Transmission Date: 20050328
  Serious: Yes (Hospitalization)
  Sender: FDA-Public Use
  Company Number: 04P-163-0277927-00

PATIENT
  Age: 53 Year
  Sex: Female
  Weight: 72.5755 kg

DRUGS (8)
  1. HUMIRA [Suspect]
     Indication: RHEUMATOID ARTHRITIS
     Dosage: 40 MG, 1 IN 2 WK, SUBCUTANEOUS
     Route: 058
     Dates: start: 20040501, end: 20040901
  2. METHOTREXATE [Concomitant]
  3. PREDNISONE [Concomitant]
  4. IRBESARTAN [Concomitant]
  5. CETIRIZINE HCL [Concomitant]
  6. FOLIC ACID [Concomitant]
  7. ALENDRONATE SODIUM [Concomitant]
  8. SERETIDE MITE [Concomitant]

REACTIONS (1)
  - RENAL ONCOCYTOMA [None]
